FAERS Safety Report 7737309-X (Version None)
Quarter: 2011Q3

REPORT INFORMATION
  Report Type: 
  Country: None (occurrence: None)
  Receive Date: 20110908
  Receipt Date: 20110826
  Transmission Date: 20111222
  Serious: Yes (Hospitalization)
  Sender: FDA-Public Use
  Company Number: CZ-UCBSA-012648

PATIENT
  Sex: Female
  Weight: 68 kg

DRUGS (20)
  1. ACIDUM FOLICUM [Concomitant]
  2. BIOMIN H [Concomitant]
     Indication: OSTEOPOROSIS PROPHYLAXIS
     Dosage: DOSE:1 SACHET
     Route: 048
     Dates: start: 20030101
  3. PERINDOPRIL [Concomitant]
     Route: 048
     Dates: start: 20080904
  4. GINKGO BILOBAE EXTRACTUM SICCUM [Concomitant]
     Indication: ATHEROSCLEROSIS PROPHYLAXIS
     Route: 048
     Dates: start: 20060110
  5. FOLIC ACID [Concomitant]
     Indication: RHEUMATOID ARTHRITIS
     Route: 048
     Dates: start: 20030501
  6. CDP870 [Suspect]
     Indication: RHEUMATOID ARTHRITIS
     Dosage: CDP870-027
     Route: 058
     Dates: start: 20050518, end: 20050615
  7. METHOTREXATE [Concomitant]
     Indication: RHEUMATOID ARTHRITIS
     Route: 048
     Dates: start: 20051006
  8. PERINDOPRIL [Concomitant]
     Indication: MYOCARDIAL ISCHAEMIA
     Route: 048
     Dates: start: 20041101, end: 20080903
  9. CDP870 [Suspect]
     Dosage: CDP870-027
     Route: 058
     Dates: start: 20050714, end: 20060503
  10. CDP870 [Suspect]
     Route: 058
     Dates: start: 20060517, end: 20100428
  11. METOPROLOL TARTRATE [Concomitant]
     Indication: HYPERTENSION
     Route: 048
     Dates: start: 20041101
  12. VITAMIN AD [Concomitant]
     Indication: OSTEOPOROSIS PROPHYLAXIS
     Dosage: 1 TABLET
     Route: 048
     Dates: start: 20061213
  13. STRONTIUM RANELATE [Concomitant]
     Indication: OSTEOPOROSIS
     Route: 048
     Dates: start: 20090903
  14. METOPROLOL TARTRATE [Concomitant]
     Indication: MYOCARDIAL ISCHAEMIA
     Route: 048
     Dates: start: 20041101
  15. ACETYLSALICYLIC ACID SRT [Concomitant]
     Indication: MYOCARDIAL ISCHAEMIA
     Route: 048
     Dates: start: 20041101
  16. PERINDOPRIL [Concomitant]
     Indication: HYPERTENSION
     Route: 048
     Dates: start: 20041101, end: 20080903
  17. PERINDOPRIL [Concomitant]
     Route: 048
     Dates: start: 20080904
  18. IBUPROFEN [Concomitant]
     Indication: RHEUMATOID ARTHRITIS
     Route: 048
     Dates: start: 20060502
  19. DOXYCYCLINE [Concomitant]
     Indication: BRONCHOPNEUMONIA
     Route: 048
     Dates: start: 20100510, end: 20100515
  20. LACRISYN [Concomitant]
     Indication: DRY EYE
     Dosage: TO CONJUNCTIVA; DOSE:1GUTTA (DROP)
     Route: 047
     Dates: start: 20100305

REACTIONS (2)
  - BRONCHOPNEUMONIA [None]
  - HERPES ZOSTER [None]
